FAERS Safety Report 6646256-6 (Version None)
Quarter: 2010Q1

REPORT INFORMATION
  Report Type: 
  Country: None (occurrence: None)
  Receive Date: 20100323
  Receipt Date: 20100217
  Transmission Date: 20100710
  Serious: No
  Sender: FDA-Public Use
  Company Number: US-BAYER-201012232BCC

PATIENT
  Age: 62 Year
  Sex: Female
  Weight: 107 kg

DRUGS (13)
  1. ALEVE [Suspect]
     Indication: ARTHRALGIA
     Dosage: TOTAL DAILY DOSE: 880 MG  UNIT DOSE: 220 MG
     Route: 048
     Dates: start: 20090101
  2. ALEVE (CAPLET) [Suspect]
     Indication: ARTHRALGIA
     Dosage: TOTAL DAILY DOSE: 880 MG  UNIT DOSE: 220 MG
     Route: 048
     Dates: start: 20090101
  3. DICLOFENAC [Concomitant]
     Route: 065
  4. GABAPENTIN [Concomitant]
     Route: 065
  5. QUINAPRIL [Concomitant]
     Route: 065
  6. ZETIA [Concomitant]
     Route: 065
  7. ALOPURINOL [Concomitant]
     Route: 065
  8. LEVOTHYROXINE SODIUM [Concomitant]
     Route: 065
  9. GLIPIZIDE [Concomitant]
     Route: 065
  10. VITAMIN C [Concomitant]
     Route: 065
  11. CENTRUM SILVER WOMEN'S [Concomitant]
     Route: 065
  12. CALCIUM PLUS D [Concomitant]
     Route: 065
  13. FLAX SEED PILLS [Concomitant]
     Route: 065

REACTIONS (1)
  - ARTHRALGIA [None]
